FAERS Safety Report 17345625 (Version 1)
Quarter: 2020Q1

REPORT INFORMATION
  Report Type: Spontaneous
  Country: US (occurrence: US)
  Receive Date: 20200129
  Receipt Date: 20200129
  Transmission Date: 20200409
  Serious: Yes (Hospitalization)
  Sender: FDA-Public Use
  Company Number: US-BEXIMCO-2020BEX00005

PATIENT
  Sex: Male

DRUGS (2)
  1. METFORMIN HYDROCHLORIDE. [Suspect]
     Active Substance: METFORMIN HYDROCHLORIDE
     Indication: PROSTATE CANCER
     Dosage: 850 MG, 1X/DAY
     Route: 048
  2. METFORMIN HYDROCHLORIDE. [Suspect]
     Active Substance: METFORMIN HYDROCHLORIDE
     Dosage: 850 MG, 2X/DAY
     Route: 048

REACTIONS (3)
  - Nausea [Recovered/Resolved]
  - Decreased appetite [Recovered/Resolved]
  - Dehydration [Recovered/Resolved]
